FAERS Safety Report 7455316-1 (Version None)
Quarter: 2011Q2

REPORT INFORMATION
  Report Type: 
  Country: None (occurrence: None)
  Receive Date: 20110503
  Receipt Date: 20110418
  Transmission Date: 20111010
  Serious: Yes (Hospitalization)
  Sender: FDA-Public Use
  Company Number: IT-CELGENEUS-083-C5013-10101076

PATIENT
  Sex: Female
  Weight: 70 kg

DRUGS (23)
  1. NORVASC [Concomitant]
     Dosage: 10 MILLIGRAM
     Route: 048
     Dates: start: 20101217, end: 20110116
  2. FOLINA [Concomitant]
     Dosage: 5 MILLIGRAM
     Route: 048
     Dates: start: 20100721, end: 20101011
  3. CETIRIZINE HCL [Concomitant]
     Dosage: 10 MILLIGRAM
     Route: 048
     Dates: start: 20101118, end: 20101120
  4. ACYCLOVIR [Concomitant]
     Indication: ANTIVIRAL PROPHYLAXIS
     Dosage: 800 MILLIGRAM
     Route: 048
     Dates: start: 20100927, end: 20101011
  5. ENOXAPARIN SODIUM [Concomitant]
     Indication: THROMBOSIS PROPHYLAXIS
     Dosage: 4000 IU (INTERNATIONAL UNIT)
     Route: 058
     Dates: start: 20100927, end: 20101028
  6. ENOXAPARIN SODIUM [Concomitant]
     Dosage: 4000 IU (INTERNATIONAL UNIT)
     Route: 058
     Dates: start: 20101012, end: 20101019
  7. ENOXAPARIN SODIUM [Concomitant]
     Dosage: 12000 IU (INTERNATIONAL UNIT)
     Route: 058
     Dates: start: 20101020, end: 20101028
  8. LENALIDOMIDE [Suspect]
     Indication: MULTIPLE MYELOMA
     Dosage: 25 MILLIGRAM
     Route: 048
     Dates: start: 20100927, end: 20101011
  9. CETIRIZINE HCL [Concomitant]
     Indication: RASH
     Route: 048
     Dates: start: 20101004, end: 20101011
  10. AUGMENTIN [Concomitant]
     Dosage: 3 GRAM
     Route: 048
     Dates: start: 20110104, end: 20110110
  11. ALLOPURINOL [Concomitant]
     Dosage: 150 MILLIGRAM
     Route: 048
     Dates: start: 20101020
  12. VELAMOX [Concomitant]
     Dosage: 3 MILLIGRAM
     Route: 048
     Dates: start: 20101028, end: 20101120
  13. DARILIN [Concomitant]
     Indication: CYTOMEGALOVIRUS INFECTION
     Dosage: 1800 MILLIGRAM
     Route: 048
     Dates: start: 20101109, end: 20101111
  14. DIFLUCAN [Concomitant]
     Indication: ANTIFUNGAL PROPHYLAXIS
     Dosage: 200 MILLIGRAM
     Route: 048
     Dates: start: 20100327, end: 20101011
  15. DIFLUCAN [Concomitant]
     Dosage: 200 MILLIGRAM
     Route: 048
     Dates: start: 20101112, end: 20110119
  16. ALLOPURINOL [Concomitant]
     Indication: PROPHYLAXIS
     Dosage: 300 MILLIGRAM
     Route: 048
     Dates: start: 20050810, end: 20101011
  17. ACYCLOVIR [Concomitant]
     Dosage: 800 MILLIGRAM
     Route: 048
     Dates: start: 20101126, end: 20110119
  18. DARILIN [Concomitant]
     Dosage: 900 MILLIGRAM
     Route: 048
     Dates: start: 20101112, end: 20101126
  19. DEXAMETHASONE [Suspect]
     Indication: MULTIPLE MYELOMA
     Dosage: 20 MILLIGRAM
     Route: 065
     Dates: start: 20100927, end: 20101011
  20. FULCRO [Concomitant]
     Indication: DYSLIPIDAEMIA
     Dosage: 200 MILLIGRAM
     Route: 048
     Dates: start: 20050810, end: 20101011
  21. AUGMENTIN [Concomitant]
     Dosage: 900 MILLIGRAM
     Route: 048
     Dates: start: 20101112, end: 20101126
  22. NORVASC [Concomitant]
     Indication: HYPERTENSION
     Dosage: 10 MILLIGRAM
     Route: 048
     Dates: start: 20090915, end: 20101011
  23. NEXIUM [Concomitant]
     Indication: PROPHYLAXIS
     Route: 048
     Dates: start: 20101012, end: 20101021

REACTIONS (2)
  - CONFUSIONAL STATE [None]
  - HEPATITIS ACUTE [None]
